FAERS Safety Report 5600646-9 (Version None)
Quarter: 2008Q1

REPORT INFORMATION
  Report Type: 
  Country: None (occurrence: None)
  Receive Date: 20080123
  Receipt Date: 20080114
  Transmission Date: 20080703
  Serious: Yes (Hospitalization, Other)
  Sender: FDA-Public Use
  Company Number: US-ELI_LILLY_AND_COMPANY-US200801002536

PATIENT
  Sex: Female
  Weight: 145.13 kg

DRUGS (7)
  1. BYETTA [Suspect]
     Dosage: 5 UG, 2/D
     Route: 058
     Dates: start: 20061201, end: 20071001
  2. BYETTA [Suspect]
     Dosage: 10 UG, 2/D
     Route: 058
     Dates: start: 20071001
  3. ACTOS [Concomitant]
     Dosage: 15 MG, DAILY (1/D)
     Dates: start: 20071001
  4. LASIX [Concomitant]
     Indication: RENAL FAILURE CHRONIC
     Dosage: 40 MG, AS NEEDED
     Dates: start: 20050101
  5. LASIX [Concomitant]
     Dosage: UNK, AS NEEDED
     Route: 042
     Dates: start: 20070928, end: 20071004
  6. POTASSIUM CHLORIDE [Concomitant]
     Indication: RENAL FAILURE CHRONIC
     Dosage: 20 MEQ, UNKNOWN
     Dates: start: 20050101
  7. LIPITOR [Concomitant]
     Dates: end: 20071001

REACTIONS (7)
  - BACK PAIN [None]
  - FLANK PAIN [None]
  - GAIT DISTURBANCE [None]
  - HYPOAESTHESIA [None]
  - INTERVERTEBRAL DISC PROTRUSION [None]
  - NEUROPATHY PERIPHERAL [None]
  - RENAL FAILURE CHRONIC [None]
